FAERS Safety Report 4293818-X (Version None)
Quarter: 2004Q1

REPORT INFORMATION
  Report Type: 
  Country: None (occurrence: None)
  Receive Date: 20040211
  Receipt Date: 20040211
  Transmission Date: 20041129
  Serious: Yes (Death)
  Sender: FDA-Public Use
  Company Number: None

PATIENT
  Age: 64 Year
  Sex: Female
  Weight: 63.5036 kg

DRUGS (4)
  1. ZOLOFT [Suspect]
     Indication: ANXIETY
     Dosage: 2 X DAY
     Dates: start: 20031006, end: 20031117
  2. ZOLOFT [Suspect]
     Indication: DEPRESSION
     Dosage: 2 X DAY
     Dates: start: 20031006, end: 20031117
  3. XANAX [Concomitant]
  4. TRAZODONE HCL [Concomitant]

REACTIONS (4)
  - COMPLETED SUICIDE [None]
  - GUN SHOT WOUND [None]
  - HYPOAESTHESIA [None]
  - PANIC ATTACK [None]
